FAERS Safety Report 5902465-2 (Version None)
Quarter: 2008Q3

REPORT INFORMATION
  Report Type: 
  Country: None (occurrence: None)
  Receive Date: 20080925
  Receipt Date: 20080911
  Transmission Date: 20090109
  Serious: Yes (Other)
  Sender: FDA-Public Use
  Company Number: 2008BI023706

PATIENT
  Age: 33 Year
  Sex: Female

DRUGS (3)
  1. TYSABRI [Suspect]
     Indication: MULTIPLE SCLEROSIS
     Dosage: 300 MG;QM;IV
     Route: 042
     Dates: start: 20070117
  2. SEIZURE MEDICATION [Concomitant]
  3. .. [Concomitant]

REACTIONS (5)
  - CONVULSION [None]
  - DYSPHEMIA [None]
  - FATIGUE [None]
  - LETHARGY [None]
  - MENTAL IMPAIRMENT [None]
